FAERS Safety Report 7815166-0 (Version None)
Quarter: 2011Q4

REPORT INFORMATION
  Report Type: 
  Country: None (occurrence: None)
  Receive Date: 20111014
  Receipt Date: 20111011
  Transmission Date: 20120403
  Serious: Yes (Other)
  Sender: FDA-Public Use
  Company Number: US-PFIZER INC-2011214200

PATIENT
  Sex: Male

DRUGS (1)
  1. CHANTIX [Suspect]
     Indication: SMOKING CESSATION THERAPY
     Dosage: UNK
     Dates: start: 20100901

REACTIONS (4)
  - NERVOUSNESS [None]
  - FEAR [None]
  - WITHDRAWAL SYNDROME [None]
  - SUICIDAL IDEATION [None]
